FAERS Safety Report 7111719-6 (Version None)
Quarter: 2010Q4

REPORT INFORMATION
  Report Type: 
  Country: None (occurrence: None)
  Receive Date: 20101118
  Receipt Date: 20101115
  Transmission Date: 20110411
  Serious: Yes (Other)
  Sender: FDA-Public Use
  Company Number: US-MERCK-1010USA01924

PATIENT
  Age: 73 Year
  Sex: Female
  Weight: 117 kg

DRUGS (2)
  1. FOSAMAX [Suspect]
     Indication: OSTEOPOROSIS
     Route: 048
  2. FOSAMAX [Suspect]
     Route: 048
     Dates: start: 19990101, end: 20080201

REACTIONS (17)
  - ANXIETY [None]
  - APPENDIX DISORDER [None]
  - ARTHRITIS [None]
  - ARTHROPATHY [None]
  - BLOOD CHOLESTEROL INCREASED [None]
  - CYST [None]
  - DENTAL CARIES [None]
  - EMPYEMA DRAINAGE [None]
  - FISTULA DISCHARGE [None]
  - GINGIVAL INFECTION [None]
  - HYPERTENSION [None]
  - IMPAIRED HEALING [None]
  - LOOSE TOOTH [None]
  - ORAL INFECTION [None]
  - OSTEONECROSIS OF JAW [None]
  - SINUS DISORDER [None]
  - STOMATITIS [None]
